FAERS Safety Report 4706469-7 (Version None)
Quarter: 2005Q3

REPORT INFORMATION
  Report Type: 
  Country: None (occurrence: None)
  Receive Date: 20050705
  Receipt Date: 20050407
  Transmission Date: 20060218
  Serious: Yes (Other)
  Sender: FDA-Public Use
  Company Number: FR-GLAXOSMITHKLINE-B0377405A

PATIENT
  Age: 46 Year
  Sex: Female
  Weight: 58 kg

DRUGS (3)
  1. REQUIP [Suspect]
     Indication: PARKINSON'S DISEASE
     Dates: start: 20050201
  2. MOTILIUM [Concomitant]
     Route: 048
     Dates: start: 20041201, end: 20050101
  3. STRESAM [Concomitant]
     Route: 048
     Dates: end: 20050101

REACTIONS (3)
  - FATIGUE [None]
  - SOMNOLENCE [None]
  - SUDDEN ONSET OF SLEEP [None]
